FAERS Safety Report 11159515 (Version 3)
Quarter: 2015Q3

REPORT INFORMATION
  Report Type: Report from Study
  Country: ES (occurrence: ES)
  Receive Date: 20150603
  Receipt Date: 20150917
  Transmission Date: 20151125
  Serious: Yes (Hospitalization)
  Sender: FDA-Public Use
  Company Number: ES-JNJFOC-20150513880

PATIENT
  Age: 57 Year
  Sex: Male

DRUGS (5)
  1. METFORMIN [Concomitant]
     Active Substance: METFORMIN HYDROCHLORIDE
     Route: 065
  2. INSULIN ASPART [Concomitant]
     Active Substance: INSULIN ASPART
     Dosage: PRN (AS NEEDED)
     Route: 058
     Dates: start: 20150514, end: 20150612
  3. INSULIN [Concomitant]
     Active Substance: INSULIN NOS
     Dosage: BASAL
     Route: 065
  4. CANAGLIFLOZIN [Suspect]
     Active Substance: CANAGLIFLOZIN
     Route: 048
  5. CANAGLIFLOZIN [Suspect]
     Active Substance: CANAGLIFLOZIN
     Indication: TYPE 2 DIABETES MELLITUS
     Route: 048
     Dates: start: 20140730, end: 20150519

REACTIONS (2)
  - Penile prosthesis insertion [Recovered/Resolved]
  - Penile abscess [Recovered/Resolved]

NARRATIVE: CASE EVENT DATE: 20150421
